FAERS Safety Report 4558726-5 (Version None)
Quarter: 2005Q1

REPORT INFORMATION
  Report Type: 
  Country: None (occurrence: None)
  Receive Date: 20050119
  Receipt Date: 20041115
  Transmission Date: 20050727
  Serious: Yes (Other)
  Sender: FDA-Public Use
  Company Number: 2004097395

PATIENT
  Age: 65 Year
  Sex: Female
  Weight: 65.7716 kg

DRUGS (4)
  1. CELEBREX [Suspect]
     Indication: OSTEOARTHRITIS
     Dosage: 400 MG (200 MG, 2 IN 1 D), ORAL
     Route: 048
     Dates: start: 20040101, end: 20041101
  2. AZITHROMYCIN [Suspect]
     Indication: NASOPHARYNGITIS
     Dosage: ORAL
     Route: 048
     Dates: start: 20040101
  3. DOXYCYCLINE [Suspect]
     Indication: NASOPHARYNGITIS
     Dosage: ORAL
     Route: 048
     Dates: start: 20040101, end: 20040101
  4. VITAMINS (VITAMINS) [Concomitant]

REACTIONS (10)
  - HYPERSENSITIVITY [None]
  - HYPOTHYROIDISM [None]
  - NASOPHARYNGITIS [None]
  - ORAL MUCOSAL BLISTERING [None]
  - PRODUCTIVE COUGH [None]
  - RESPIRATORY DISORDER [None]
  - THERAPY NON-RESPONDER [None]
  - TONGUE OEDEMA [None]
  - VIRAL INFECTION [None]
  - VITREOUS FLOATERS [None]
